FAERS Safety Report 6361012-4 (Version None)
Quarter: 2009Q3

REPORT INFORMATION
  Report Type: 
  Country: None (occurrence: None)
  Receive Date: 20090918
  Receipt Date: 20090915
  Transmission Date: 20100115
  Serious: Yes (Hospitalization)
  Sender: FDA-Public Use
  Company Number: JP-B.I. PHARMACEUTICALS,INC./RIDGEFIELD-2009-BP-10769NB

PATIENT
  Age: 88 Year
  Sex: Female

DRUGS (8)
  1. MICOMBI COMBINATION [Suspect]
     Indication: HYPERTENSION
     Dosage: 1DF
     Route: 048
     Dates: start: 20090728, end: 20090729
  2. ACTOS [Suspect]
     Indication: DIABETES MELLITUS
     Route: 048
  3. FUROSEMIDE [Concomitant]
     Route: 048
  4. ALOSENN [Concomitant]
     Route: 048
  5. LOXONIN [Concomitant]
     Route: 048
  6. NEUROVITAN [Concomitant]
     Route: 048
  7. RIMATIL [Concomitant]
     Route: 048
  8. BASEN [Concomitant]
     Route: 048

REACTIONS (2)
  - ARTHROPATHY [None]
  - DYSARTHRIA [None]
